FAERS Safety Report 7427689-7 (Version None)
Quarter: 2011Q2

REPORT INFORMATION
  Report Type: 
  Country: None (occurrence: None)
  Receive Date: 20110407
  Receipt Date: 20110328
  Transmission Date: 20111010
  Serious: Yes (Hospitalization)
  Sender: FDA-Public Use
  Company Number: 2011028021

PATIENT
  Age: 50 Year
  Sex: Female
  Weight: 74.8435 kg

DRUGS (36)
  1. NIFEREX (POLYSACCHARIDE-IRON COMPLEX) [Concomitant]
  2. PERCOCET [Concomitant]
  3. REQUIP [Concomitant]
  4. FOLIC ACID [Concomitant]
  5. BUMEX [Concomitant]
  6. LACTINEX (LACTINEX) [Concomitant]
  7. GEODEN (ZIPRASIDONE) [Concomitant]
  8. DEXTROSE 5% (GLUCOSE) [Concomitant]
  9. IBUPROFEN [Concomitant]
  10. MUCINEX [Concomitant]
  11. ROBAXIN [Concomitant]
  12. XOPENEX [Concomitant]
  13. DEXAMETHASONE [Concomitant]
  14. NEURONTIN [Concomitant]
  15. PREVACID [Concomitant]
  16. PRIVIGEN [Suspect]
  17. SINGULAIR [Concomitant]
  18. LISINOPRIL [Concomitant]
  19. COUMADIN [Concomitant]
  20. FLONASE [Concomitant]
  21. EFFEXOR [Concomitant]
  22. BONIVA [Concomitant]
  23. AMBIEN [Concomitant]
  24. LOPRESSOR [Concomitant]
  25. LACTULOSE [Concomitant]
  26. PRILOSEC [Concomitant]
  27. PRIVIGEN [Suspect]
     Indication: SELECTIVE IGG SUBCLASS DEFICIENCY
     Dosage: (27.5 MG 1X/2 WEEKS, 550 ML SUBCUTANEOUS)
     Route: 058
     Dates: start: 20110204
  28. IPRATROPIUM BROMIDE [Concomitant]
  29. CYANOCOBALAMIN [Concomitant]
  30. SYMBICORT (BUDESONDE W/FORMOTEROL FUMARATE) [Concomitant]
  31. MELATONIN (MELATONIN) [Concomitant]
  32. PRESERVISION (OCUVITE /01762701/) [Concomitant]
  33. ACETAMINOPHEN [Concomitant]
  34. PREDNISONE [Concomitant]
  35. NYSTATIN [Concomitant]
  36. HEPARIN [Concomitant]

REACTIONS (1)
  - ILEUS [None]
